FAERS Safety Report 8390120-1 (Version None)
Quarter: 2012Q2

REPORT INFORMATION
  Report Type: 
  Country: None (occurrence: None)
  Receive Date: 20120529
  Receipt Date: 20120507
  Transmission Date: 20120825
  Serious: Yes (Disabling, Other)
  Sender: FDA-Public Use
  Company Number: CA-JNJFOC-20120214516

PATIENT
  Age: 31 Year
  Sex: Male

DRUGS (5)
  1. CHANTIX [Interacting]
     Indication: SMOKING CESSATION THERAPY
     Dosage: 0.5 MG, TWICE PER DAY
     Route: 048
     Dates: start: 20120128, end: 20120131
  2. CHANTIX [Interacting]
     Dosage: 0.5 MG EVERY DAY
     Route: 048
     Dates: start: 20120124, end: 20120127
  3. CHANTIX [Interacting]
     Dosage: 1 MG, TWICE IN A DAY
     Route: 048
     Dates: start: 20120131, end: 20120202
  4. CHANTIX [Interacting]
     Route: 048
     Dates: start: 20120206, end: 20120217
  5. TRAMADOL HCL [Suspect]
     Indication: BACK PAIN
     Dosage: 200 MG EVERY DAY; NDC# 02299209
     Route: 048
     Dates: start: 20080101

REACTIONS (2)
  - DRUG INEFFECTIVE [None]
  - DRUG INTERACTION [None]
